FAERS Safety Report 13499591 (Version 1)
Quarter: 2017Q2

REPORT INFORMATION
  Report Type: Spontaneous
  Country: US (occurrence: US)
  Receive Date: 20170501
  Receipt Date: 20170501
  Transmission Date: 20170830
  Serious: Yes (Life-Threatening, Hospitalization)
  Sender: FDA-Public Use
  Company Number: US-EMD SERONO-8154990

PATIENT
  Sex: Male

DRUGS (1)
  1. REBIF [Suspect]
     Active Substance: INTERFERON BETA-1A
     Indication: MULTIPLE SCLEROSIS
     Route: 058

REACTIONS (3)
  - Depression [Recovered/Resolved]
  - Suicidal ideation [Recovered/Resolved]
  - Suicide attempt [Recovered/Resolved]
